FAERS Safety Report 5754282-4 (Version None)
Quarter: 2008Q2

REPORT INFORMATION
  Report Type: 
  Country: None (occurrence: None)
  Receive Date: 20080530
  Receipt Date: 20080520
  Transmission Date: 20081010
  Serious: Yes (Other)
  Sender: FDA-Public Use
  Company Number: JP-PFIZER INC-2008040703

PATIENT
  Sex: Male

DRUGS (7)
  1. CABERGOLINE [Suspect]
     Indication: MALAISE
     Route: 048
     Dates: start: 20060828, end: 20071113
  2. LUVOX [Concomitant]
     Indication: DEPRESSION
     Route: 048
  3. EURODIN [Concomitant]
     Indication: INSOMNIA
     Route: 048
  4. BENOZIL [Concomitant]
     Indication: INSOMNIA
     Route: 048
     Dates: start: 20061120, end: 20070725
  5. SEROQUEL [Concomitant]
     Indication: INSOMNIA
     Route: 048
  6. SEPAZON [Concomitant]
     Indication: INSOMNIA
     Route: 048
  7. BENOZIL [Concomitant]
     Route: 048
     Dates: start: 20070905

REACTIONS (2)
  - MALAISE [None]
  - PATHOLOGICAL GAMBLING [None]
